FAERS Safety Report 7215028-6 (Version None)
Quarter: 2011Q1

REPORT INFORMATION
  Report Type: 
  Country: None (occurrence: None)
  Receive Date: 20110107
  Receipt Date: 20100826
  Transmission Date: 20110831
  Serious: No
  Sender: FDA-Public Use
  Company Number: A0870641A

PATIENT
  Age: 44 Year
  Sex: Female

DRUGS (16)
  1. ALLOPURINOL [Concomitant]
  2. LANTUS [Concomitant]
  3. CLONAZEPAM [Concomitant]
  4. AMBIEN [Concomitant]
  5. GLYBURIDE [Concomitant]
  6. LYRICA [Concomitant]
  7. LAXATIVE [Concomitant]
  8. BACLOFEN [Concomitant]
  9. GAS X [Concomitant]
  10. LOVAZA [Suspect]
     Dosage: 2CAP TWICE PER DAY
     Route: 048
     Dates: start: 20100603, end: 20100715
  11. DOCUSATE SODIUM [Concomitant]
  12. LISINOPRIL AND HYDROCHLOROTHIAZIDE [Concomitant]
  13. SOMA [Concomitant]
  14. PRAVASTATIN [Concomitant]
  15. MORPHINE SULFATE [Concomitant]
  16. NOVOLOG [Concomitant]

REACTIONS (6)
  - PRURITUS [None]
  - NIGHT SWEATS [None]
  - RASH PAPULAR [None]
  - CHILLS [None]
  - PYREXIA [None]
  - VOMITING [None]
